FAERS Safety Report 15215021 (Version 1)
Quarter: 2018Q3

REPORT INFORMATION
  Report Type: Spontaneous
  Country: US (occurrence: US)
  Receive Date: 20180703
  Receipt Date: 20180703
  Transmission Date: 20181010
  Serious: No
  Sender: FDA-Public Use
  Company Number: None

PATIENT
  Age: 62 Year
  Sex: Female
  Weight: 120.15 kg

DRUGS (9)
  1. CRANBERRY. [Concomitant]
     Active Substance: CRANBERRY
  2. FISH OIL [Concomitant]
     Active Substance: FISH OIL
  3. FUROSEMIDE. [Suspect]
     Active Substance: FUROSEMIDE
     Indication: SWELLING
     Dosage: ?          QUANTITY:1 TABLET(S);?
     Route: 048
  4. K2?D3 [Concomitant]
  5. CHLORTHALIDONE. [Concomitant]
     Active Substance: CHLORTHALIDONE
  6. Q10 [Concomitant]
  7. TURMERIC [Concomitant]
     Active Substance: HERBALS\TURMERIC
  8. MULTIVITAMIN [Concomitant]
     Active Substance: VITAMINS
  9. BABY ASPIRIN [Concomitant]
     Active Substance: ASPIRIN

REACTIONS (4)
  - Tinnitus [None]
  - Dizziness [None]
  - Joint swelling [None]
  - Urticaria [None]

NARRATIVE: CASE EVENT DATE: 20180702
